FAERS Safety Report 6012991-6 (Version None)
Quarter: 2008Q4

REPORT INFORMATION
  Report Type: 
  Country: None (occurrence: None)
  Receive Date: 20081217
  Receipt Date: 20081202
  Transmission Date: 20090506
  Serious: Yes (Hospitalization)
  Sender: FDA-Public Use
  Company Number: 2008S1014067

PATIENT
  Age: 51 Year
  Sex: Female

DRUGS (6)
  1. BYSTOLIC [Suspect]
     Indication: BLOOD PRESSURE FLUCTUATION
     Dosage: 5 MG; X1; ORAL, 5 MG; X1; ORAL
     Route: 048
     Dates: start: 20080715, end: 20080715
  2. BYSTOLIC [Suspect]
     Indication: BLOOD PRESSURE FLUCTUATION
     Dosage: 5 MG; X1; ORAL, 5 MG; X1; ORAL
     Route: 048
     Dates: start: 20080720, end: 20080720
  3. LEVOXYL [Concomitant]
  4. METOPROLOL SUCCINATE [Concomitant]
  5. ASPIRIN [Concomitant]
  6. OXYGEN [Concomitant]

REACTIONS (2)
  - CEREBROVASCULAR ACCIDENT [None]
  - TRANSIENT ISCHAEMIC ATTACK [None]
